FAERS Safety Report 26121738 (Version 2)
Quarter: 2025Q4

REPORT INFORMATION
  Report Type: Spontaneous
  Country: JP (occurrence: JP)
  Receive Date: 20251204
  Receipt Date: 20251210
  Transmission Date: 20260117
  Serious: Yes (Life-Threatening, Other)
  Sender: MALLINCKRODT
  Company Number: JP-MALLINCKRODT-MNK202507327

PATIENT
  Age: 69 Year
  Sex: Male
  Weight: 57 kg

DRUGS (5)
  1. NITRIC OXIDE [Suspect]
     Active Substance: NITRIC OXIDE
     Indication: Pulmonary hypertension
     Dosage: 20 PPM
     Route: 055
     Dates: start: 20250606
  2. DOBUTAMINE [Concomitant]
     Active Substance: DOBUTAMINE HYDROCHLORIDE
     Dosage: 3.5 GAMMA
  3. DOBUTAMINE [Concomitant]
     Active Substance: DOBUTAMINE HYDROCHLORIDE
     Dosage: 5.0 GAMMA
  4. DOBUTAMINE [Concomitant]
     Active Substance: DOBUTAMINE HYDROCHLORIDE
     Dosage: 4.3 GAMMA
  5. MILRINONE [Concomitant]
     Active Substance: MILRINONE
     Dosage: 0.25 GAMMA

REACTIONS (5)
  - Anaemia [Unknown]
  - Device related bacteraemia [Unknown]
  - Atelectasis [Unknown]
  - Pleural effusion [Unknown]
  - Restlessness [Unknown]

NARRATIVE: CASE EVENT DATE: 20250101
